FAERS Safety Report 13791567 (Version 1)
Quarter: 2017Q3

REPORT INFORMATION
  Report Type: Spontaneous
  Country: IT (occurrence: IT)
  Receive Date: 20170725
  Receipt Date: 20170725
  Transmission Date: 20171127
  Serious: Yes (Other)
  Sender: FDA-Public Use
  Company Number: IT-SA-2017SA131426

PATIENT
  Age: 90 Year
  Sex: Female

DRUGS (7)
  1. LANTUS SOLOSTAR [Suspect]
     Active Substance: INSULIN GLARGINE
     Indication: TYPE 2 DIABETES MELLITUS
     Route: 058
     Dates: start: 20170101, end: 20170416
  2. TRITTICO [Concomitant]
     Active Substance: TRAZODONE HYDROCHLORIDE
     Dosage: 50 MG / 5 ML SOLUTION FOR INJECTION 3 VIALS 5 ML
     Route: 065
  3. FLUXUM [Concomitant]
     Active Substance: PARNAPARIN SODIUM
     Dosage: USE 6 SYRINGES PREFILLED 0.4 M
     Route: 058
  4. HUMALOG [Suspect]
     Active Substance: INSULIN LISPRO
     Indication: TYPE 2 DIABETES MELLITUS
     Route: 058
     Dates: start: 20170101, end: 20170416
  5. SOLOSTAR [Concomitant]
     Active Substance: DEVICE
     Indication: TYPE 2 DIABETES MELLITUS
     Dates: start: 20170101, end: 20170416
  6. TRITTICO [Concomitant]
     Active Substance: TRAZODONE HYDROCHLORIDE
     Dosage: 60 MG /ML ORAL DROPS SOLUTION VIAL 30 ML
     Route: 048
  7. TIKLID [Concomitant]
     Active Substance: TICLOPIDINE HYDROCHLORIDE
     Route: 048

REACTIONS (3)
  - Hypoglycaemia [Recovering/Resolving]
  - Loss of consciousness [Recovering/Resolving]
  - Chronic kidney disease [Recovering/Resolving]

NARRATIVE: CASE EVENT DATE: 20170416
